FAERS Safety Report 10635172 (Version 1)
Quarter: 2014Q4

REPORT INFORMATION
  Report Type: Spontaneous
  Country: DE (occurrence: DE)
  Receive Date: 20141205
  Receipt Date: 20141205
  Transmission Date: 20150529
  Serious: Yes (Death, Hospitalization, Other)
  Sender: FDA-Public Use
  Company Number: PHHY2014DE156512

PATIENT
  Age: 47 Year
  Sex: Female

DRUGS (6)
  1. 5-FLUOROURACIL [Suspect]
     Active Substance: FLUOROURACIL
     Indication: ADENOCARCINOMA
     Dosage: 3200 MG/M2, UNK
     Route: 065
  2. CALCIUM FOLINATE [Suspect]
     Active Substance: LEUCOVORIN CALCIUM
     Indication: ADENOCARCINOMA
     Dosage: 200 MG/M2, UNK
     Route: 065
  3. CISPLATIN. [Suspect]
     Active Substance: CISPLATIN
     Indication: ADENOCARCINOMA
     Dosage: 25 MG/M2, UNK
     Route: 065
     Dates: start: 201302, end: 201311
  4. IRINOTECAN [Suspect]
     Active Substance: IRINOTECAN
     Indication: ADENOCARCINOMA
     Dosage: 165 MG/M2, UNK
     Route: 065
  5. OXALIPLATIN. [Suspect]
     Active Substance: OXALIPLATIN
     Indication: ADENOCARCINOMA
     Dosage: 85 MG/M2, UNK
     Route: 065
  6. GEMCITABINE [Suspect]
     Active Substance: GEMCITABINE\GEMCITABINE HYDROCHLORIDE
     Indication: ADENOCARCINOMA
     Dosage: 1000 MG/M2, UNK
     Route: 065
     Dates: start: 201302, end: 201311

REACTIONS (10)
  - Death [Fatal]
  - Peritonitis bacterial [Unknown]
  - Vomiting [Unknown]
  - Abdominal pain [Unknown]
  - Polyneuropathy [Unknown]
  - Leukocytosis [Unknown]
  - Fatigue [Unknown]
  - Nausea [Unknown]
  - Thrombocytopenia [Unknown]
  - Ascites [Unknown]
